FAERS Safety Report 5334768-7 (Version None)
Quarter: 2007Q2

REPORT INFORMATION
  Report Type: 
  Country: None (occurrence: None)
  Receive Date: 20070308
  Receipt Date: 20061228
  Transmission Date: 20071010
  Serious: No
  Sender: FDA-Public Use
  Company Number: 2006-BP-10336BP

PATIENT
  Age: 63 Year
  Sex: Female

DRUGS (9)
  1. SPIRIVA [Suspect]
     Indication: CHRONIC OBSTRUCTIVE PULMONARY DISEASE
     Dosage: 18 MCG (18 MCG, 1 IN 1 D), IH
     Route: 055
  2. SPIRIVA [Suspect]
  3. ADVAIR (SERETIDE) [Concomitant]
  4. ALBUTEROL [Concomitant]
  5. SINGULAIR [Concomitant]
  6. ATIVAN [Concomitant]
  7. DARVOCET [Concomitant]
  8. ZOCOR [Concomitant]
  9. DOXEPIN HCL [Concomitant]

REACTIONS (1)
  - AGEUSIA [None]
